FAERS Safety Report 6436504-X (Version None)
Quarter: 2009Q4

REPORT INFORMATION
  Report Type: 
  Country: None (occurrence: None)
  Receive Date: 20091111
  Receipt Date: 20091029
  Transmission Date: 20100525
  Serious: Yes (Other)
  Sender: FDA-Public Use
  Company Number: AU-ELI_LILLY_AND_COMPANY-AU200911001437

PATIENT
  Age: 10 Year
  Sex: Male

DRUGS (2)
  1. STRATTERA [Suspect]
     Dosage: 10 MG, UNKNOWN
     Route: 065
  2. STRATTERA [Suspect]
     Dosage: 18 MG, UNKNOWN
     Route: 065

REACTIONS (1)
  - SUICIDAL IDEATION [None]
